FAERS Safety Report 18601408 (Version 1)
Quarter: 2020Q4

REPORT INFORMATION
  Report Type: Spontaneous
  Country: GB (occurrence: GB)
  Receive Date: 20201210
  Receipt Date: 20201210
  Transmission Date: 20210114
  Serious: Yes (Life-Threatening)
  Sender: FDA-Public Use
  Company Number: GB-TEVA-2020-GB-1856234

PATIENT
  Age: 57 Year
  Sex: Male
  Weight: 54 kg

DRUGS (23)
  1. CAPECITABINE. [Suspect]
     Active Substance: CAPECITABINE
     Indication: CHEMOTHERAPY
     Dosage: 4300MILLIGRAM
     Route: 048
     Dates: start: 20201110, end: 20201113
  2. GENTAMICIN. [Concomitant]
     Active Substance: GENTAMICIN
  3. FOLIC ACID. [Concomitant]
     Active Substance: FOLIC ACID
  4. CLENIL MODULITE [Concomitant]
     Active Substance: BECLOMETHASONE DIPROPIONATE
  5. PREDNISOLONE. [Concomitant]
     Active Substance: PREDNISOLONE
  6. NUTRITIONAL SUPPLEMENT [Concomitant]
     Active Substance: DIETARY SUPPLEMENT
  7. TRIMBOW [Concomitant]
     Active Substance: BECLOMETHASONE DIPROPIONATE\FORMOTEROL FUMARATE\GLYCOPYRROLATE
     Dosage: 87/5/9 MICROGRAMS
  8. PARACETAMOL [Concomitant]
     Active Substance: ACETAMINOPHEN
  9. THIAMINE. [Concomitant]
     Active Substance: THIAMINE
  10. COLECALCIFEROL [Concomitant]
     Active Substance: CHOLECALCIFEROL
  11. TIGECYCLINE. [Concomitant]
     Active Substance: TIGECYCLINE
  12. LOPERAMIDE [Concomitant]
     Active Substance: LOPERAMIDE
  13. MULTIVITAMIN [Concomitant]
     Active Substance: VITAMINS
  14. SALBUTAMOL [Concomitant]
     Active Substance: ALBUTEROL
  15. PABRINEX [Concomitant]
     Active Substance: ASCORBIC ACID\VITAMIN B COMPLEX
  16. OCTREOTIDE. [Concomitant]
     Active Substance: OCTREOTIDE
  17. CO-AMOXICLAV [Concomitant]
     Active Substance: AMOXICILLIN\CLAVULANATE POTASSIUM
  18. TAZOCIN [Concomitant]
     Active Substance: PIPERACILLIN SODIUM\TAZOBACTAM SODIUM
  19. TRAZODONE [Concomitant]
     Active Substance: TRAZODONE HYDROCHLORIDE
  20. OMEPRAZOLE. [Concomitant]
     Active Substance: OMEPRAZOLE
  21. CREON [Concomitant]
     Active Substance: PANCRELIPASE AMYLASE\PANCRELIPASE LIPASE\PANCRELIPASE PROTEASE
  22. OLANZAPINE. [Concomitant]
     Active Substance: OLANZAPINE
  23. DOMPERIDONE [Concomitant]
     Active Substance: DOMPERIDONE

REACTIONS (2)
  - Acute myocardial infarction [Recovering/Resolving]
  - Chest pain [Unknown]

NARRATIVE: CASE EVENT DATE: 20201113
